FAERS Safety Report 16387799 (Version 4)
Quarter: 2019Q4

REPORT INFORMATION
  Report Type: Report from Study
  Country: CA (occurrence: CA)
  Receive Date: 20190604
  Receipt Date: 20191220
  Transmission Date: 20200122
  Serious: Yes (Other)
  Sender: FDA-Public Use
  Company Number: CA-ROCHE-2326173

PATIENT
  Age: 44 Year
  Sex: Female
  Weight: 58.6 kg

DRUGS (5)
  1. OCREVUS [Suspect]
     Active Substance: OCRELIZUMAB
     Indication: RELAPSING-REMITTING MULTIPLE SCLEROSIS
     Dosage: 300 MG AT DAY 0 AND 14, THEN 600 MG EVERY 6 MONTH?DATE OF TREATMENT: 28/OCT/2019
     Route: 042
     Dates: start: 20190515
  2. ACETAMINOPHEN. [Concomitant]
     Active Substance: ACETAMINOPHEN
     Indication: PREMEDICATION
     Route: 048
  3. METHYLPREDNISOLONE. [Concomitant]
     Active Substance: METHYLPREDNISOLONE
     Indication: PREMEDICATION
     Route: 042
  4. SOLU-MEDROL [Concomitant]
     Active Substance: METHYLPREDNISOLONE SODIUM SUCCINATE
  5. SALINE [SODIUM CHLORIDE] [Concomitant]
     Active Substance: SODIUM CHLORIDE

REACTIONS (8)
  - Dyspnoea [Unknown]
  - Fatigue [Recovering/Resolving]
  - Sensation of foreign body [Unknown]
  - Infusion related reaction [Recovered/Resolved]
  - Multiple sclerosis relapse [Unknown]
  - Cough [Unknown]
  - Nasal congestion [Unknown]
  - Oral herpes [Unknown]

NARRATIVE: CASE EVENT DATE: 20190515
